FAERS Safety Report 9995960 (Version 2)
Quarter: 2014Q3

REPORT INFORMATION
  Report Type: Spontaneous
  Country: US (occurrence: US)
  Receive Date: 20140311
  Receipt Date: 20140826
  Transmission Date: 20150326
  Serious: Yes (Other)
  Sender: FDA-Public Use
  Company Number: US-BAYER-2014-035899

PATIENT
  Age: 34 Year
  Sex: Female
  Weight: 77.98 kg

DRUGS (1)
  1. YASMIN [Suspect]
     Active Substance: DROSPIRENONE\ETHINYL ESTRADIOL
     Dosage: UNK
     Dates: start: 2003, end: 2004

REACTIONS (8)
  - Thrombosis [None]
  - Abdominal pain [None]
  - General physical health deterioration [None]
  - Injury [None]
  - Pain [None]
  - Anxiety [None]
  - Emotional distress [None]
  - Deep vein thrombosis [None]

NARRATIVE: CASE EVENT DATE: 20040409
